FAERS Safety Report 15034727 (Version 1)
Quarter: 2018Q2

REPORT INFORMATION
  Report Type: Spontaneous
  Country: RU (occurrence: RU)
  Receive Date: 20180620
  Receipt Date: 20180620
  Transmission Date: 20180711
  Serious: Yes (Hospitalization)
  Sender: FDA-Public Use
  Company Number: RU-AMGEN-RUSSP2018062955

PATIENT
  Age: 28 Year
  Sex: Female

DRUGS (4)
  1. VENOFER [Concomitant]
     Active Substance: IRON SUCROSE
     Indication: HAEMOGLOBIN DECREASED
     Dosage: 100 MG, QWK
     Route: 042
     Dates: start: 20171205, end: 20180418
  2. ERALFON [Concomitant]
     Indication: HAEMOGLOBIN DECREASED
     Dosage: 2000 ME, 3 TIMES/WK
     Route: 058
     Dates: start: 20171205
  3. ELEVIT [Concomitant]
     Active Substance: FOLIC ACID\IRON\MINERALS\VITAMINS
     Dosage: 1 DF(TAB), QD
     Route: 048
  4. MIMPARA [Suspect]
     Active Substance: CINACALCET HYDROCHLORIDE
     Indication: BLOOD PARATHYROID HORMONE ABNORMAL
     Dosage: 30 MG, QD
     Route: 048
     Dates: start: 20180301

REACTIONS (3)
  - Preterm premature rupture of membranes [Unknown]
  - Maternal exposure during pregnancy [Unknown]
  - Premature delivery [Unknown]
